FAERS Safety Report 6621173-6 (Version None)
Quarter: 2010Q1

REPORT INFORMATION
  Report Type: 
  Country: None (occurrence: None)
  Receive Date: 20100309
  Receipt Date: 20100222
  Transmission Date: 20100710
  Serious: No
  Sender: FDA-Public Use
  Company Number: US-BIOGENIDEC-2010BI005918

PATIENT
  Age: 52 Year
  Sex: Female

DRUGS (1)
  1. AVONEX [Suspect]
     Indication: MULTIPLE SCLEROSIS
     Route: 030
     Dates: start: 20070401, end: 20100201

REACTIONS (11)
  - COORDINATION ABNORMAL [None]
  - DRUG SPECIFIC ANTIBODY PRESENT [None]
  - FAECAL INCONTINENCE [None]
  - FALL [None]
  - FATIGUE [None]
  - FEELING ABNORMAL [None]
  - GAIT DISTURBANCE [None]
  - GENERAL PHYSICAL HEALTH DETERIORATION [None]
  - HEMIPARESIS [None]
  - HYPOAESTHESIA [None]
  - PARAESTHESIA [None]
